FAERS Safety Report 6335593-0 (Version None)
Quarter: 2009Q3

REPORT INFORMATION
  Report Type: 
  Country: None (occurrence: None)
  Receive Date: 20090831
  Receipt Date: 20090819
  Transmission Date: 20100115
  Serious: Yes (Life-Threatening, Hospitalization, Other)
  Sender: FDA-Public Use
  Company Number: DE-PFIZER INC-2009252172

PATIENT
  Age: 69 Year

DRUGS (10)
  1. THELIN [Suspect]
     Indication: PULMONARY ARTERIAL HYPERTENSION
     Dosage: 100 MG, 1X/DAY
     Route: 048
     Dates: start: 20081201
  2. THELIN [Suspect]
     Indication: SCLERODERMA
     Dosage: UNK
     Dates: start: 20070401, end: 20070701
  3. THELIN [Suspect]
     Indication: COR PULMONALE
  4. REVATIO [Suspect]
     Indication: PULMONARY ARTERIAL HYPERTENSION
     Dosage: 20 MG, 3X/DAY
  5. REVATIO [Suspect]
     Dosage: 20 MG, 3X/DAY
     Dates: start: 20051201, end: 20070301
  6. AMLODIPINE [Concomitant]
     Dosage: 5 UNK, 1X/DAY
  7. METHOTREXATE SODIUM [Concomitant]
     Dosage: 5 MG, WEEKLY
  8. ASPIRIN [Concomitant]
  9. SIMVASTATIN [Concomitant]
  10. PLAVIX [Concomitant]

REACTIONS (6)
  - ACUTE MYOCARDIAL INFARCTION [None]
  - EXTREMITY NECROSIS [None]
  - LEG AMPUTATION [None]
  - MYOCARDIAL INFARCTION [None]
  - RESPIRATORY GAS EXCHANGE DISORDER [None]
  - VASCULAR GRAFT [None]
